FAERS Safety Report 7152381-6 (Version None)
Quarter: 2010Q4

REPORT INFORMATION
  Report Type: 
  Country: None (occurrence: None)
  Receive Date: 20101213
  Receipt Date: 20101201
  Transmission Date: 20110411
  Serious: Yes (Other)
  Sender: FDA-Public Use
  Company Number: JP-PFIZER INC-2010161922

PATIENT
  Age: 49 Year
  Sex: Male

DRUGS (3)
  1. LATANOPROST [Suspect]
     Indication: CORNEAL ENDOTHELIITIS
     Route: 047
  2. BIMATOPROST [Suspect]
     Indication: CORNEAL ENDOTHELIITIS
     Route: 047
  3. TRAVOPROST [Suspect]
     Indication: CORNEAL ENDOTHELIITIS
     Route: 047

REACTIONS (1)
  - INTRAOCULAR PRESSURE INCREASED [None]
